FAERS Safety Report 6653854-2 (Version None)
Quarter: 2010Q1

REPORT INFORMATION
  Report Type: 
  Country: None (occurrence: None)
  Receive Date: 20100326
  Receipt Date: 20100319
  Transmission Date: 20100710
  Serious: Yes (Life-Threatening, Hospitalization)
  Sender: FDA-Public Use
  Company Number: B0643044A

PATIENT
  Sex: Female
  Weight: 75 kg

DRUGS (1)
  1. SERETIDE DISKUS [Suspect]
     Indication: CHRONIC OBSTRUCTIVE PULMONARY DISEASE
     Dosage: 60PUFF PER DAY
     Route: 065
     Dates: start: 20100317, end: 20100317

REACTIONS (3)
  - HYPERTENSION [None]
  - OVERDOSE [None]
  - TACHYCARDIA [None]
